FAERS Safety Report 17069061 (Version 2)
Quarter: 2020Q1

REPORT INFORMATION
  Report Type: Spontaneous
  Country: US (occurrence: US)
  Receive Date: 20191124
  Receipt Date: 20200325
  Transmission Date: 20200409
  Serious: Yes (Other)
  Sender: FDA-Public Use
  Company Number: US-ASTRAZENECA-2019SF65581

PATIENT
  Age: 779 Month
  Sex: Male
  Weight: 65.8 kg

DRUGS (30)
  1. PRILOSEC OTC [Suspect]
     Active Substance: OMEPRAZOLE MAGNESIUM
     Route: 048
     Dates: start: 200902, end: 200903
  2. PREVACID [Suspect]
     Active Substance: LANSOPRAZOLE
     Indication: GASTROOESOPHAGEAL REFLUX DISEASE
     Route: 065
     Dates: start: 201204, end: 201210
  3. METHADONE [Concomitant]
     Active Substance: METHADONE HYDROCHLORIDE
     Indication: PAIN
     Dates: start: 2013
  4. MULTIVITAMIN [Concomitant]
     Active Substance: VITAMINS
     Indication: PRODUCT COMMUNICATION ISSUE
     Dates: start: 2013
  5. OXYCODONE [Concomitant]
     Active Substance: OXYCODONE
  6. CYCLOBENZAPRINE. [Concomitant]
     Active Substance: CYCLOBENZAPRINE
  7. ESZOPICLONE. [Concomitant]
     Active Substance: ESZOPICLONE
  8. PILOCARPINE. [Concomitant]
     Active Substance: PILOCARPINE
  9. NEXIUM [Suspect]
     Active Substance: ESOMEPRAZOLE MAGNESIUM
     Indication: GASTROOESOPHAGEAL REFLUX DISEASE
     Dosage: GENERIC
     Route: 065
     Dates: start: 201702, end: 201807
  10. NEXIUM 24HR [Suspect]
     Active Substance: ESOMEPRAZOLE MAGNESIUM
     Indication: GASTROOESOPHAGEAL REFLUX DISEASE
     Route: 048
     Dates: start: 2013, end: 2014
  11. LEVOTHYROXINE. [Concomitant]
     Active Substance: LEVOTHYROXINE
     Indication: THYROID DISORDER
     Dates: start: 2009
  12. RANITIDINE. [Concomitant]
     Active Substance: RANITIDINE
  13. ESZOPICLONE. [Concomitant]
     Active Substance: ESZOPICLONE
  14. METHADONE [Concomitant]
     Active Substance: METHADONE HYDROCHLORIDE
  15. OMEPRAZOLE. [Suspect]
     Active Substance: OMEPRAZOLE
     Indication: GASTROOESOPHAGEAL REFLUX DISEASE
     Route: 065
     Dates: start: 201806, end: 201807
  16. FLEXERIL [Concomitant]
     Active Substance: CYCLOBENZAPRINE HYDROCHLORIDE
     Indication: PAIN
     Dates: start: 2012
  17. POLYETHYLENE [Concomitant]
     Active Substance: HIGH DENSITY POLYETHYLENE
  18. MORPHINE [Concomitant]
     Active Substance: MORPHINE
  19. NEXIUM [Suspect]
     Active Substance: ESOMEPRAZOLE MAGNESIUM
     Indication: GASTROOESOPHAGEAL REFLUX DISEASE
     Route: 048
     Dates: start: 2009, end: 2019
  20. FLUCONAZOLE. [Concomitant]
     Active Substance: FLUCONAZOLE
     Indication: INFECTION
     Dates: start: 2015, end: 2018
  21. ACETAMINOPHEN. [Concomitant]
     Active Substance: ACETAMINOPHEN
  22. NEXIUM [Suspect]
     Active Substance: ESOMEPRAZOLE MAGNESIUM
     Indication: GASTROOESOPHAGEAL REFLUX DISEASE
     Route: 048
     Dates: start: 200904, end: 201004
  23. PREVACID [Suspect]
     Active Substance: LANSOPRAZOLE
     Indication: GASTROOESOPHAGEAL REFLUX DISEASE
     Route: 065
     Dates: start: 2009, end: 2019
  24. CYCLOBENZAPRINE. [Concomitant]
     Active Substance: CYCLOBENZAPRINE
     Indication: MUSCLE RELAXANT THERAPY
     Dates: start: 2013
  25. IRON SUPPLEMENT [Concomitant]
     Active Substance: IRON
     Indication: IRON DEFICIENCY
     Dates: start: 2013
  26. FAMOTIDINE. [Concomitant]
     Active Substance: FAMOTIDINE
  27. FLUCONAZOLE. [Concomitant]
     Active Substance: FLUCONAZOLE
  28. LEVOTHYROXINE SODIUM. [Concomitant]
     Active Substance: LEVOTHYROXINE SODIUM
  29. SALAGEN [Concomitant]
     Active Substance: PILOCARPINE HYDROCHLORIDE
     Dates: start: 2016
  30. METHADONE [Concomitant]
     Active Substance: METHADONE HYDROCHLORIDE

REACTIONS (1)
  - Chronic kidney disease [Not Recovered/Not Resolved]

NARRATIVE: CASE EVENT DATE: 201812
